FAERS Safety Report 6083470-5 (Version None)
Quarter: 2009Q1

REPORT INFORMATION
  Report Type: 
  Country: None (occurrence: None)
  Receive Date: 20090217
  Receipt Date: 20090202
  Transmission Date: 20090719
  Serious: Yes (Death)
  Sender: FDA-Public Use
  Company Number: AE 2009-022

PATIENT
  Age: 22 Year
  Sex: Male

DRUGS (1)
  1. FAZACLO ODT 100 MG AZUR PHARMA [Suspect]
     Dosage: 400 MG DAILY PO
     Route: 048
     Dates: start: 20080211, end: 20090105

REACTIONS (1)
  - DEATH [None]
